FAERS Safety Report 14163754 (Version 2)
Quarter: 2019Q2

REPORT INFORMATION
  Report Type: Spontaneous
  Country: US (occurrence: US)
  Receive Date: 20171106
  Receipt Date: 20190625
  Transmission Date: 20190711
  Serious: Yes (Hospitalization)
  Sender: FDA-Public Use
  Company Number: US-INDIVIOR LIMITED-INDV-105842-2017

PATIENT
  Age: 60 Year
  Sex: Male

DRUGS (9)
  1. BUPRENORPHINE. [Suspect]
     Active Substance: BUPRENORPHINE
     Dosage: UNK
     Route: 051
  2. BUPIVACAINE. [Concomitant]
     Active Substance: BUPIVACAINE
     Indication: ANALGESIC THERAPY
     Dosage: EPIDURAL CATHETER 0.2MG PER HOUR
     Route: 008
  3. HYDROMORPHONE [Concomitant]
     Active Substance: HYDROMORPHONE
     Dosage: 5 AND 10 MG PER DAY
     Route: 042
  4. HYDROMORPHONE [Concomitant]
     Active Substance: HYDROMORPHONE
     Dosage: EPIDURAL CATHETER 0.2MG PER HOUR
     Route: 008
  5. BUPRENORPHINE. [Suspect]
     Active Substance: BUPRENORPHINE
     Indication: MUSCULOSKELETAL PAIN
     Dosage: UNK
     Route: 060
  6. BUPRENORPHINE. [Suspect]
     Active Substance: BUPRENORPHINE
     Dosage: 2MG UNK
     Route: 060
  7. HYDROMORPHONE [Concomitant]
     Active Substance: HYDROMORPHONE
     Indication: ANALGESIC THERAPY
     Dosage: 1MG
     Route: 065
  8. BUPRENORPHINE. [Suspect]
     Active Substance: BUPRENORPHINE
     Dosage: 2MG, UNK
     Route: 060
  9. FENTANYL. [Concomitant]
     Active Substance: FENTANYL
     Indication: ANALGESIC THERAPY
     Dosage: 150 ?G, UNK
     Route: 065

REACTIONS (5)
  - Small intestinal stenosis [Recovered/Resolved]
  - Procedural pain [Recovered/Resolved]
  - Off label use [Not Recovered/Not Resolved]
  - Product preparation issue [Not Recovered/Not Resolved]
  - Neoplasm malignant [Recovered/Resolved]
